FAERS Safety Report 22010011 (Version 7)
Quarter: 2023Q4

REPORT INFORMATION
  Report Type: Report from Study
  Country: JP (occurrence: JP)
  Receive Date: 20230220
  Receipt Date: 20231128
  Transmission Date: 20240109
  Serious: Yes (Hospitalization, Other)
  Sender: FDA-Public Use
  Company Number: JP-ARGENX-2023-ARGX-JP000495

PATIENT
  Age: 45 Year
  Sex: Female
  Weight: 74 kg

DRUGS (21)
  1. VYVGART [Suspect]
     Active Substance: EFGARTIGIMOD ALFA-FCAB
     Indication: Myasthenia gravis
     Dosage: 740 MG, 1/WEEK
     Route: 041
     Dates: start: 20220906, end: 20220927
  2. VYVGART [Suspect]
     Active Substance: EFGARTIGIMOD ALFA-FCAB
     Dosage: 740 MG, 1/WEEK
     Route: 041
     Dates: start: 20221108, end: 20221122
  3. VYVGART [Suspect]
     Active Substance: EFGARTIGIMOD ALFA-FCAB
     Dosage: 740 MG, 1/WEEK
     Route: 041
     Dates: start: 20230228, end: 20230314
  4. PREDONINE [Suspect]
     Active Substance: PREDNISOLONE
     Indication: Myasthenia gravis
     Dosage: 20 MG
     Route: 048
     Dates: start: 20220806, end: 20220906
  5. PREDONINE [Suspect]
     Active Substance: PREDNISOLONE
     Dosage: 17.5 MG
     Route: 048
     Dates: start: 20220907, end: 20220920
  6. PREDONINE [Suspect]
     Active Substance: PREDNISOLONE
     Dosage: 15 MG
     Route: 048
     Dates: start: 20220921, end: 20221101
  7. PREDONINE [Suspect]
     Active Substance: PREDNISOLONE
     Dosage: 12.5 MG
     Route: 048
     Dates: start: 20221102, end: 20221213
  8. PREDONINE [Suspect]
     Active Substance: PREDNISOLONE
     Dosage: 10 MG
     Route: 048
     Dates: start: 20221214, end: 20230213
  9. PREDONINE [Suspect]
     Active Substance: PREDNISOLONE
     Dosage: 20 MG
     Route: 048
     Dates: start: 20230214, end: 20230307
  10. PREDONINE [Suspect]
     Active Substance: PREDNISOLONE
     Dosage: 15 MG
     Route: 048
     Dates: start: 20230308, end: 20230314
  11. PREDONINE [Suspect]
     Active Substance: PREDNISOLONE
     Dosage: 12.5 MG
     Route: 048
     Dates: start: 20230315, end: 20230420
  12. MESTINON [Concomitant]
     Active Substance: PYRIDOSTIGMINE BROMIDE
     Indication: Myasthenia gravis
     Dosage: 180 MG
     Route: 048
     Dates: start: 20220806
  13. TACROLIMUS [Concomitant]
     Active Substance: TACROLIMUS
     Indication: Myasthenia gravis
     Dosage: 3 MG
     Route: 048
     Dates: start: 20220806
  14. VEKLURY [Concomitant]
     Active Substance: REMDESIVIR
     Indication: Product used for unknown indication
     Dosage: 200 MG
     Route: 041
     Dates: start: 20230213, end: 20230213
  15. VEKLURY [Concomitant]
     Active Substance: REMDESIVIR
     Dosage: 100 MG
     Route: 041
     Dates: start: 20230214, end: 20230215
  16. RYBELSUS [Concomitant]
     Active Substance: SEMAGLUTIDE
     Indication: Product used for unknown indication
     Dosage: 3 MG
     Route: 048
     Dates: start: 20230217
  17. RABEPRAZOLE [Concomitant]
     Active Substance: RABEPRAZOLE
     Indication: Product used for unknown indication
     Dosage: 10 MG
     Route: 048
     Dates: start: 20220806
  18. ALENDRONATE [Concomitant]
     Active Substance: ALENDRONATE SODIUM
     Indication: Product used for unknown indication
     Dosage: 35 MG, PER WEEK
     Route: 048
     Dates: start: 20220806
  19. SULFAMETHOXAZOLE\TRIMETHOPRIM [Concomitant]
     Active Substance: SULFAMETHOXAZOLE\TRIMETHOPRIM
     Indication: Product used for unknown indication
     Dosage: 1 DF, EVERY OTHER DAY
     Route: 048
     Dates: start: 20220806
  20. SODIUM FERROUS CITRATE [Concomitant]
     Active Substance: SODIUM FERROUS CITRATE
     Indication: Product used for unknown indication
     Dosage: 100 MG
     Route: 048
     Dates: start: 20221214, end: 20230207
  21. SODIUM FERROUS CITRATE [Concomitant]
     Active Substance: SODIUM FERROUS CITRATE
     Dosage: 50 MG
     Route: 048
     Dates: start: 20230208

REACTIONS (3)
  - Symptom recurrence [Recovering/Resolving]
  - COVID-19 [Recovered/Resolved]
  - Steroid diabetes [Not Recovered/Not Resolved]

NARRATIVE: CASE EVENT DATE: 20230207
